FAERS Safety Report 9822835 (Version 2)
Quarter: 2014Q1

REPORT INFORMATION
  Report Type: Spontaneous
  Country: US (occurrence: US)
  Receive Date: 20140116
  Receipt Date: 20140116
  Transmission Date: 20141002
  Serious: Yes (Hospitalization, Other)
  Sender: FDA-Public Use
  Company Number: US-B.I. PHARMACEUTICALS,INC./RIDGEFIELD-2013-BI-22809BP

PATIENT
  Age: 67 Year
  Sex: Male
  Weight: 129.27 kg

DRUGS (14)
  1. PRADAXA [Suspect]
     Dosage: 300 MG
     Route: 048
     Dates: start: 20111004, end: 20120626
  2. HEPARIN [Suspect]
     Indication: ATRIAL FIBRILLATION
     Dates: start: 20120627, end: 20120630
  3. ALBUTEROL [Concomitant]
     Dosage: 2 PUF
     Route: 055
  4. FLUOXETINE HCL [Concomitant]
     Indication: DEPRESSION
     Dosage: 20 MG
     Route: 048
  5. IBUPROFEN [Concomitant]
     Route: 048
  6. LEVOTHYROXINE [Concomitant]
     Dosage: 0.137 MCG
     Route: 048
  7. LISINOPRIL [Concomitant]
     Dosage: 40 MG
     Route: 048
  8. MOXIFLOXACIN HCL [Concomitant]
     Route: 047
  9. OMEPRAZOLE [Concomitant]
     Dosage: 40 MG
     Route: 048
  10. PREDNISONE ACETATE [Concomitant]
     Route: 047
  11. ROSUVASTATIN [Concomitant]
     Dosage: 20 MG
     Route: 048
  12. SILDENAFIL CITRATE [Concomitant]
     Dosage: 25 MG
     Route: 048
  13. TAMSULOSIN HCL [Concomitant]
     Dosage: 0.4 MG
     Route: 048
  14. ASPIRIN [Concomitant]
     Dosage: 162 MG
     Route: 048

REACTIONS (10)
  - Cerebral ischaemia [Unknown]
  - Encephalopathy [Unknown]
  - Peritoneal haemorrhage [Unknown]
  - Haematoma [Unknown]
  - Haematuria [Unknown]
  - Anaemia [Unknown]
  - Fall [Unknown]
  - Atrial fibrillation [Unknown]
  - Coagulopathy [Unknown]
  - Contusion [Unknown]
